FAERS Safety Report 7240515-4 (Version None)
Quarter: 2011Q1

REPORT INFORMATION
  Report Type: 
  Country: None (occurrence: None)
  Receive Date: 20110124
  Receipt Date: 20110118
  Transmission Date: 20110831
  Serious: No
  Sender: FDA-Public Use
  Company Number: US-PFIZER INC-2011012511

PATIENT
  Sex: Female
  Weight: 77.551 kg

DRUGS (4)
  1. AROMASIN [Suspect]
     Indication: BREAST CANCER FEMALE
     Dosage: 25 MG, 1X/DAY
     Route: 048
     Dates: start: 20090101
  2. ARIMIDEX [Suspect]
     Dosage: UNK
     Route: 048
     Dates: start: 20090110, end: 20090101
  3. ALPRAZOLAM [Concomitant]
     Dosage: 2 MG, THREE TO FOUR TIMES DAILY
     Route: 048
  4. FLUOXETINE HYDROCHLORIDE [Concomitant]
     Dosage: 80 MG, 1X/DAY
     Route: 048

REACTIONS (16)
  - NAUSEA [None]
  - INCREASED APPETITE [None]
  - HEADACHE [None]
  - ABNORMAL DREAMS [None]
  - MALAISE [None]
  - DIARRHOEA [None]
  - ARTHRALGIA [None]
  - VOMITING [None]
  - WEIGHT INCREASED [None]
  - DEPRESSION [None]
  - ALOPECIA [None]
  - HYPERHIDROSIS [None]
  - FATIGUE [None]
  - HIRSUTISM [None]
  - ACNE CYSTIC [None]
  - INSOMNIA [None]
